FAERS Safety Report 17817560 (Version 1)
Quarter: 2020Q2

REPORT INFORMATION
  Report Type: Report from Study
  Country: DE (occurrence: DE)
  Receive Date: 20200522
  Receipt Date: 20200522
  Transmission Date: 20200714
  Serious: Yes (Hospitalization, Other)
  Sender: FDA-Public Use
  Company Number: DE-TEVA-2020-DE-1237960

PATIENT
  Age: 59 Year
  Sex: Female

DRUGS (2)
  1. BUDENOFLAK CAPSULES [Concomitant]
  2. COPAXONE [Suspect]
     Active Substance: GLATIRAMER ACETATE
     Indication: MULTIPLE SCLEROSIS
     Dates: start: 20151002, end: 20200131

REACTIONS (4)
  - Seizure [Recovered/Resolved]
  - Disorientation [Recovered/Resolved]
  - Epilepsy [Unknown]
  - Memory impairment [Recovered/Resolved]

NARRATIVE: CASE EVENT DATE: 20170621
